FAERS Safety Report 9029666 (Version 1)
Quarter: 2013Q1

REPORT INFORMATION
  Report Type: Spontaneous
  Country: IN (occurrence: IN)
  Receive Date: 20130125
  Receipt Date: 20130125
  Transmission Date: 20140127
  Serious: Yes (Hospitalization)
  Sender: FDA-Public Use
  Company Number: PHHY2013IN006308

PATIENT
  Age: 69 Year
  Sex: Female

DRUGS (2)
  1. ACLASTA [Suspect]
     Indication: OSTEOPOROSIS
     Dosage: 5 MG (5MG/100ML), UNK
     Route: 042
  2. ACLASTA [Suspect]
     Dosage: 5 MG (5MG/100ML), UNK
     Route: 042
     Dates: start: 20111224

REACTIONS (1)
  - Gastritis [Recovering/Resolving]
